FAERS Safety Report 18139807 (Version 1)
Quarter: 2020Q3

REPORT INFORMATION
  Report Type: Spontaneous
  Country: US (occurrence: US)
  Receive Date: 20200812
  Receipt Date: 20200812
  Transmission Date: 20201103
  Serious: Yes (Hospitalization)
  Sender: FDA-Public Use
  Company Number: None

PATIENT
  Age: 63 Year
  Sex: Male

DRUGS (1)
  1. ANDROGEL [Suspect]
     Active Substance: TESTOSTERONE
     Indication: HYPOGONADISM
     Route: 061
     Dates: start: 20181231

REACTIONS (4)
  - Therapy change [None]
  - Hypoaesthesia oral [None]
  - Hypoaesthesia [None]
  - Paraesthesia oral [None]

NARRATIVE: CASE EVENT DATE: 20190401
